FAERS Safety Report 11844762 (Version 2)
Quarter: 2016Q2

REPORT INFORMATION
  Report Type: Spontaneous
  Country: ZA (occurrence: ZA)
  Receive Date: 20151217
  Receipt Date: 20160401
  Transmission Date: 20160815
  Serious: Yes (Hospitalization)
  Sender: FDA-Public Use
  Company Number: ZA-BAYER-2015-484833

PATIENT
  Age: 38 Year
  Sex: Female

DRUGS (2)
  1. MIRENA [Suspect]
     Active Substance: LEVONORGESTREL
     Dosage: 20 MCG/24HR, CONT
     Route: 015
     Dates: start: 2015
  2. ANDROCUR 10 MG [Suspect]
     Active Substance: CYPROTERONE ACETATE
     Dosage: 12.5 MG/24HR, UNK
     Route: 048
     Dates: start: 2015

REACTIONS (3)
  - Diffuse alopecia [None]
  - Erythema multiforme [Recovered/Resolved]
  - Rash [None]

NARRATIVE: CASE EVENT DATE: 20150907
